FAERS Safety Report 5370077-8 (Version None)
Quarter: 2007Q2

REPORT INFORMATION
  Report Type: 
  Country: None (occurrence: None)
  Receive Date: 20070626
  Receipt Date: 20070620
  Transmission Date: 20071010
  Serious: Yes (Other)
  Sender: FDA-Public Use
  Company Number: US-BAYER-200711954BCC

PATIENT
  Age: 17 Year
  Sex: Female
  Weight: 64 kg

DRUGS (1)
  1. ALEVE (CAPLET) [Suspect]
     Indication: DYSMENORRHOEA
     Dosage: UNIT DOSE: 220 MG
     Route: 048
     Dates: start: 20070619

REACTIONS (6)
  - ABDOMINAL PAIN [None]
  - FALL [None]
  - FEELING HOT [None]
  - PAIN [None]
  - SENSORIMOTOR DISORDER [None]
  - TREMOR [None]
